FAERS Safety Report 21006008 (Version 1)
Quarter: 2022Q2

REPORT INFORMATION
  Report Type: Report from Study
  Country: IE (occurrence: IE)
  Receive Date: 20220624
  Receipt Date: 20220624
  Transmission Date: 20220721
  Serious: Yes (Hospitalization)
  Sender: FDA-Public Use
  Company Number: IE-MYLANLABS-2022M1042410

PATIENT
  Age: 27 Year
  Sex: Female

DRUGS (3)
  1. HULIO [Suspect]
     Active Substance: ADALIMUMAB-FKJP
     Indication: Crohn^s disease
     Dosage: 40 MILLIGRAM, Q2W
     Route: 065
     Dates: start: 20220601
  2. HULIO [Suspect]
     Active Substance: ADALIMUMAB-FKJP
     Dosage: 40 MILLIGRAM, Q2W(ROUTE: DEVICE)
     Route: 065
  3. HULIO [Suspect]
     Active Substance: ADALIMUMAB-FKJP
     Dosage: 80 MILLIGRAM LOADING DOSE (TWO PENS ONE IN EACH THIGH)
     Route: 065
     Dates: start: 20220615

REACTIONS (3)
  - Hypoaesthesia [Recovered/Resolved]
  - Injection site pruritus [Recovered/Resolved]
  - Injection site rash [Recovered/Resolved]
